FAERS Safety Report 9099993 (Version 1)
Quarter: 2013Q1

REPORT INFORMATION
  Report Type: Spontaneous
  Country: US (occurrence: US)
  Receive Date: 20130215
  Receipt Date: 20130215
  Transmission Date: 20140127
  Serious: No
  Sender: FDA-Public Use
  Company Number: US-009507513-1302USA004706

PATIENT
  Sex: Female

DRUGS (5)
  1. PEGINTRON [Suspect]
     Dosage: 150 MICROGRAM, QW
     Route: 058
  2. RIBAVIRIN [Suspect]
     Route: 048
  3. TACROLIMUS [Concomitant]
     Route: 048
  4. PROCRIT [Concomitant]
     Dosage: 10000/ML
  5. NEUPOGEN [Concomitant]

REACTIONS (1)
  - Adverse event [Unknown]
